FAERS Safety Report 16063853 (Version 1)
Quarter: 2019Q1

REPORT INFORMATION
  Report Type: Report from Study
  Country: CA (occurrence: CA)
  Receive Date: 20190312
  Receipt Date: 20190312
  Transmission Date: 20190418
  Serious: Yes (Other)
  Sender: FDA-Public Use
  Company Number: CA-JNJFOC-20190308781

PATIENT
  Sex: Male
  Weight: 108.9 kg

DRUGS (1)
  1. STELARA [Suspect]
     Active Substance: USTEKINUMAB
     Indication: PSORIASIS
     Dosage: STRENGTH = 90 MG
     Route: 058
     Dates: start: 20180730

REACTIONS (3)
  - Lower respiratory tract infection [Recovered/Resolved]
  - Lip injury [Recovered/Resolved]
  - Sports injury [Recovered/Resolved]
